FAERS Safety Report 6775259-6 (Version None)
Quarter: 2010Q2

REPORT INFORMATION
  Report Type: 
  Country: None (occurrence: None)
  Receive Date: 20100617
  Receipt Date: 20100614
  Transmission Date: 20101027
  Serious: Yes (Other)
  Sender: FDA-Public Use
  Company Number: JP-B.I. PHARMACEUTICALS,INC./RIDGEFIELD-2010-BP-04817NB

PATIENT
  Sex: Female

DRUGS (6)
  1. MICARDIS [Suspect]
     Indication: HYPERTENSION
     Dosage: 40 MG
     Route: 048
     Dates: start: 20061003, end: 20061030
  2. MICARDIS [Suspect]
     Dosage: 80 MG
     Route: 048
     Dates: start: 20061031, end: 20090608
  3. MICARDIS [Suspect]
     Dosage: 40 MG
     Route: 048
     Dates: start: 20090609, end: 20090804
  4. ADALAT CC [Concomitant]
     Dosage: 20 MG
     Route: 048
     Dates: start: 20081028
  5. LIVALO [Concomitant]
     Dosage: 2 MG
     Route: 048
     Dates: start: 20081216
  6. ASPIRIN [Concomitant]
     Indication: CEREBRAL ARTERY STENOSIS
     Dosage: 100 MG
     Route: 048
     Dates: start: 20081216

REACTIONS (1)
  - TRANSIENT ISCHAEMIC ATTACK [None]
